FAERS Safety Report 9509867 (Version 3)
Quarter: 2013Q4

REPORT INFORMATION
  Report Type: Spontaneous
  Country: SE (occurrence: SE)
  Receive Date: 20130909
  Receipt Date: 20131011
  Transmission Date: 20140711
  Serious: Yes (Hospitalization)
  Sender: FDA-Public Use
  Company Number: CHNY2013SE001826

PATIENT
  Sex: Female

DRUGS (3)
  1. NICOTINELL MINT LOZENGE [Suspect]
     Dosage: UNK, UNK
  2. NICOTINELL GUM [Suspect]
     Indication: SMOKING CESSATION THERAPY
     Dosage: 3-4 DF, QD
     Route: 048
     Dates: start: 201301, end: 201308
  3. NICOTINELL TTS [Suspect]
     Dosage: UNK
     Dates: start: 201211, end: 201301

REACTIONS (2)
  - Thrombosis [Recovered/Resolved with Sequelae]
  - Pain in extremity [Unknown]
